FAERS Safety Report 9241486 (Version 1)
Quarter: 2013Q1

REPORT INFORMATION
  Report Type: Spontaneous
  Country: US (occurrence: None)
  Receive Date: 20121121
  Receipt Date: 20121121
  Transmission Date: 20140127
  Serious: Yes (Other)
  Sender: FDA-Public Use
  Company Number: 1457401

PATIENT
  Age: 68 Year
  Sex: Female

DRUGS (21)
  1. DOCETAXEL [Suspect]
     Indication: BREAST CANCER
     Dosage: 09/06/2012; 75 MG/M2 X 2 DOSES
  2. FLUOXETINE [Concomitant]
  3. CALCIUM [Concomitant]
  4. LIMBREL [Concomitant]
  5. NEXIUM /01479302/ [Concomitant]
  6. LIPITOR [Concomitant]
  7. SINGULAIR [Concomitant]
  8. LORATADINE [Concomitant]
  9. MUCINEX [Concomitant]
  10. ADVAIR [Concomitant]
  11. TRAVATAN [Concomitant]
  12. COMBIGAN [Concomitant]
  13. PROVENTIL [Concomitant]
  14. DEXAMETHASONE [Concomitant]
  15. ZOFRAN [Concomitant]
  16. COMPAZINE /00013302/ [Concomitant]
  17. LEVAQUIN [Concomitant]
  18. NEULASTA [Concomitant]
  19. CYTOXAN [Concomitant]
  20. PEPCID /00706001/ [Concomitant]
  21. ALOXI [Concomitant]

REACTIONS (3)
  - Injection site streaking [None]
  - Muscle spasms [None]
  - Constipation [None]
